FAERS Safety Report 13579832 (Version 1)
Quarter: 2017Q2

REPORT INFORMATION
  Report Type: Spontaneous
  Country: US (occurrence: US)
  Receive Date: 20170524
  Receipt Date: 20170524
  Transmission Date: 20170830
  Serious: No
  Sender: FDA-Public Use
  Company Number: None

PATIENT
  Age: 76 Year
  Sex: Female

DRUGS (1)
  1. LEUKERAN [Suspect]
     Active Substance: CHLORAMBUCIL
     Indication: LYMPHOMA
     Route: 048
     Dates: start: 20160617, end: 20170523

REACTIONS (5)
  - Confusional state [None]
  - Insomnia [None]
  - Dyspnoea [None]
  - Nervousness [None]
  - Dizziness [None]

NARRATIVE: CASE EVENT DATE: 20170523
